FAERS Safety Report 8024493-6 (Version None)
Quarter: 2011Q4

REPORT INFORMATION
  Report Type: 
  Country: None (occurrence: None)
  Receive Date: 20111130
  Receipt Date: 20110609
  Transmission Date: 20120403
  Serious: Yes (Other)
  Sender: FDA-Public Use
  Company Number: 329681

PATIENT
  Age: 58 Year
  Sex: Female
  Weight: 66.7 kg

DRUGS (11)
  1. LEVEMIR [Suspect]
     Indication: TYPE 1 DIABETES MELLITUS
     Dosage: SUBCUTANEOUS
     Route: 058
     Dates: start: 20060101
  2. NOVOLOG [Suspect]
     Indication: TYPE 1 DIABETES MELLITUS
     Dosage: SLIDING SCALE, SUBCUTANEOUS
     Route: 058
     Dates: start: 20080101
  3. PLAVIX [Concomitant]
  4. ASPIRIN [Concomitant]
  5. LIPITOR [Concomitant]
  6. LISINOPRIL [Concomitant]
  7. TRAVATAN [Concomitant]
  8. PREDNISONE TAB [Concomitant]
  9. VERAPAMIL [Concomitant]
  10. ALPHAGAN P [Concomitant]
  11. COSOPT [Concomitant]

REACTIONS (1)
  - BLOOD GLUCOSE DECREASED [None]
